FAERS Safety Report 9931824 (Version 1)
Quarter: 2014Q1

REPORT INFORMATION
  Report Type: Spontaneous
  Country: US (occurrence: None)
  Receive Date: 20140227
  Receipt Date: 20140227
  Transmission Date: 20141002
  Serious: No
  Sender: FDA-Public Use
  Company Number: None

PATIENT
  Age: 61 Year
  Sex: Female
  Weight: 95.71 kg

DRUGS (1)
  1. GABAPENTIN [Suspect]
     Indication: NEURALGIA
     Dosage: 2 PILLS, THREE TIMES DAILY, TAKEN BY MOUTH
     Route: 048
     Dates: start: 20140121, end: 20140220

REACTIONS (16)
  - Drug ineffective [None]
  - Fatigue [None]
  - Somnolence [None]
  - Disturbance in attention [None]
  - Cough [None]
  - Cheilitis [None]
  - Ocular hyperaemia [None]
  - Eye disorder [None]
  - Retinal disorder [None]
  - Eye irritation [None]
  - Weight increased [None]
  - Decreased appetite [None]
  - Nasal congestion [None]
  - Clumsiness [None]
  - Mood swings [None]
  - Hostility [None]
